FAERS Safety Report 23939906 (Version 2)
Quarter: 2024Q2

REPORT INFORMATION
  Report Type: Spontaneous
  Country: US (occurrence: US)
  Receive Date: 20240605
  Receipt Date: 20240617
  Transmission Date: 20240716
  Serious: No
  Sender: FDA-Public Use
  Company Number: US-JNJFOC-20240566503

PATIENT
  Age: 32 Year
  Sex: Female

DRUGS (6)
  1. TYLENOL [Suspect]
     Active Substance: ACETAMINOPHEN
     Indication: Headache
     Route: 065
     Dates: start: 202405
  2. MOTRIN [Suspect]
     Active Substance: IBUPROFEN
     Indication: Headache
     Route: 065
     Dates: start: 202405
  3. TYVASO DPI [Concomitant]
     Active Substance: TREPROSTINIL
     Indication: Pulmonary arterial hypertension
     Route: 055
     Dates: start: 202307
  4. TYVASO DPI [Concomitant]
     Active Substance: TREPROSTINIL
     Route: 055
  5. TYVASO DPI [Concomitant]
     Active Substance: TREPROSTINIL
     Dosage: 80 UG (32 UG+48 UG)
     Route: 055
  6. ADEMPAS [Concomitant]
     Active Substance: RIOCIGUAT
     Indication: Product used for unknown indication
     Route: 065

REACTIONS (1)
  - Drug ineffective [Unknown]

NARRATIVE: CASE EVENT DATE: 20240501
